FAERS Safety Report 4971637-6 (Version None)
Quarter: 2006Q2

REPORT INFORMATION
  Report Type: 
  Country: None (occurrence: None)
  Receive Date: 20060407
  Receipt Date: 20060322
  Transmission Date: 20061013
  Serious: Yes (Other)
  Sender: FDA-Public Use
  Company Number: 34356

PATIENT
  Age: 33 Year
  Sex: Male

DRUGS (2)
  1. VIGAMOX [Suspect]
     Indication: PROPHYLAXIS
     Dosage: 2 GTT TID OPHT
     Route: 047
  2. ACULAR [Suspect]
     Indication: PROPHYLAXIS
     Dosage: 2 GTT QID OPHT
     Route: 047

REACTIONS (2)
  - ULCERATIVE KERATITIS [None]
  - VISUAL ACUITY REDUCED [None]
